FAERS Safety Report 19916138 (Version 1)
Quarter: 2021Q4

REPORT INFORMATION
  Report Type: Spontaneous
  Country: US (occurrence: US)
  Receive Date: 20211004
  Receipt Date: 20211004
  Transmission Date: 20220303
  Serious: No
  Sender: FDA-Public Use
  Company Number: None

PATIENT
  Age: 60 Year
  Sex: Female

DRUGS (1)
  1. CAPECITABINE [Suspect]
     Active Substance: CAPECITABINE
     Indication: Colon cancer
     Route: 048

REACTIONS (12)
  - Arthralgia [None]
  - Illness [None]
  - Vomiting [None]
  - Hernia [None]
  - Gangrene [None]
  - Transient ischaemic attack [None]
  - Muscular weakness [None]
  - Hemiparesis [None]
  - Chills [None]
  - Alopecia [None]
  - Weight increased [None]
  - Therapy interrupted [None]

NARRATIVE: CASE EVENT DATE: 20211004
